FAERS Safety Report 5487989-7 (Version None)
Quarter: 2007Q4

REPORT INFORMATION
  Report Type: 
  Country: None (occurrence: None)
  Receive Date: 20071012
  Receipt Date: 20071012
  Transmission Date: 20080405
  Serious: Yes (Other)
  Sender: FDA-Public Use
  Company Number: None

PATIENT
  Age: 53 Year
  Sex: Female
  Weight: 68.0396 kg

DRUGS (1)
  1. ZICAM GEL [Suspect]
     Indication: NASOPHARYNGITIS
     Dates: start: 20071002, end: 20071002

REACTIONS (7)
  - AGEUSIA [None]
  - ANOSMIA [None]
  - BURNING SENSATION [None]
  - ILL-DEFINED DISORDER [None]
  - LACRIMATION INCREASED [None]
  - PAIN [None]
  - SINUSITIS [None]
